FAERS Safety Report 9590548 (Version 1)
Quarter: 2013Q4

REPORT INFORMATION
  Report Type: Spontaneous
  Country: US (occurrence: US)
  Receive Date: 20131003
  Receipt Date: 20131003
  Transmission Date: 20140711
  Serious: No
  Sender: FDA-Public Use
  Company Number: US-AMGEN-USASP2012077692

PATIENT
  Sex: Female

DRUGS (13)
  1. ENBREL [Suspect]
     Indication: PSORIASIS
     Dosage: 50 MG, 2 TIMES/WK
  2. PRAVASTATIN [Concomitant]
     Dosage: 10 MG, UNK
  3. METFORMIN [Concomitant]
     Dosage: 500 MG, UNK
  4. LISINOPRIL [Concomitant]
     Dosage: 2.5 MG, UNK
  5. VITAMIN C                          /00008001/ [Concomitant]
     Dosage: 500 MG, UNK
  6. TOPROL [Concomitant]
     Dosage: 25 MG, UNK
  7. VITAMIN E                          /00110501/ [Concomitant]
     Dosage: 100 UNIT, UNK
  8. FISH OIL [Concomitant]
     Dosage: UNK
  9. VESICARE [Concomitant]
     Dosage: 50 MG, UNK
  10. ASPIRIN LOW [Concomitant]
     Dosage: 81 MG, UNK
  11. MULTIVITAMIN                       /00097801/ [Concomitant]
     Dosage: UNK
  12. CALCIUM +D                         /00944201/ [Concomitant]
     Dosage: UNK
  13. HYDROCHLOROTHIAZIDE W/TRIAMTERENE [Concomitant]
     Dosage: 25 TO 37.5

REACTIONS (1)
  - Osteoarthritis [Unknown]
